FAERS Safety Report 7803379-3 (Version None)
Quarter: 2011Q4

REPORT INFORMATION
  Report Type: 
  Country: None (occurrence: None)
  Receive Date: 20111007
  Receipt Date: 20110922
  Transmission Date: 20120403
  Serious: Yes (Other)
  Sender: FDA-Public Use
  Company Number: GB-WATSON-2011-15870

PATIENT
  Age: 65 Year
  Sex: Male

DRUGS (2)
  1. FLUOROURACIL [Suspect]
     Indication: COLON CANCER STAGE III
     Dosage: INFUSION AT 2-WEEKLY INTERVAL
     Route: 065
  2. OXALIPLATIN [Suspect]
     Indication: COLON CANCER STAGE III
     Dosage: 85 MG/M2 (AT 2-WEEKLY INTERVAL)

REACTIONS (2)
  - PULMONARY TOXICITY [None]
  - CONDITION AGGRAVATED [None]
